FAERS Safety Report 24862873 (Version 1)
Quarter: 2025Q1

REPORT INFORMATION
  Report Type: Spontaneous
  Country: US (occurrence: US)
  Receive Date: 20250120
  Receipt Date: 20250120
  Transmission Date: 20250408
  Serious: No
  Sender: BIOGEN
  Company Number: US-BIOGEN-2017BI00338512

PATIENT
  Age: 61 Year
  Sex: Female

DRUGS (4)
  1. TYSABRI [Suspect]
     Active Substance: NATALIZUMAB
     Indication: Multiple sclerosis
     Dosage: INFUSED OVER 1 HOUR
     Route: 050
  2. TYSABRI [Suspect]
     Active Substance: NATALIZUMAB
     Route: 050
     Dates: start: 20151215
  3. TYSABRI [Suspect]
     Active Substance: NATALIZUMAB
     Route: 050
     Dates: start: 202405
  4. AMPYRA [Concomitant]
     Active Substance: DALFAMPRIDINE
     Indication: Gait disturbance
     Route: 050

REACTIONS (12)
  - Prescribed underdose [Unknown]
  - Off label use [Unknown]
  - Malaise [Not Recovered/Not Resolved]
  - General physical condition abnormal [Not Recovered/Not Resolved]
  - Progressive multiple sclerosis [Unknown]
  - Multiple sclerosis relapse [Unknown]
  - Illness [Unknown]
  - Depressed level of consciousness [Unknown]
  - Nervousness [Unknown]
  - Fear [Unknown]
  - Loss of control of legs [Unknown]
  - Hypoaesthesia [Unknown]

NARRATIVE: CASE EVENT DATE: 20240501
